FAERS Safety Report 5339143-7 (Version None)
Quarter: 2007Q2

REPORT INFORMATION
  Report Type: 
  Country: None (occurrence: None)
  Receive Date: 20070530
  Receipt Date: 20070528
  Transmission Date: 20071010
  Serious: Yes (Death)
  Sender: FDA-Public Use
  Company Number: NZ-ROXANE LABORATORIES, INC-1993-BK-PS043

PATIENT
  Age: 28 Year
  Sex: Female

DRUGS (4)
  1. FENOTEROL [Suspect]
     Indication: ASTHMA
     Route: 055
     Dates: end: 19791013
  2. PREDNISONE TAB [Suspect]
     Route: 048
  3. THEOP [Suspect]
     Route: 048
  4. BECLOMETHASONE DIPROPIONATE [Suspect]

REACTIONS (2)
  - DRUG TOXICITY [None]
  - SUDDEN DEATH [None]
